FAERS Safety Report 6369128-3 (Version None)
Quarter: 2009Q3

REPORT INFORMATION
  Report Type: 
  Country: None (occurrence: None)
  Receive Date: 20090922
  Receipt Date: 20080924
  Transmission Date: 20100115
  Serious: No
  Sender: FDA-Public Use
  Company Number: US-ALLERGAN-0812017US

PATIENT
  Sex: Female

DRUGS (1)
  1. AZELEX [Suspect]
     Indication: ACNE
     Dosage: UNK, UNKNOWN
     Route: 061

REACTIONS (1)
  - DRUG INEFFECTIVE [None]
